FAERS Safety Report 10725342 (Version 1)
Quarter: 2015Q1

REPORT INFORMATION
  Report Type: Report from Study
  Country: DE (occurrence: DE)
  Receive Date: 20150121
  Receipt Date: 20150121
  Transmission Date: 20150721
  Serious: Yes (Hospitalization)
  Sender: FDA-Public Use
  Company Number: GXKR2015DE000561

PATIENT
  Age: 77 Year
  Sex: Female
  Weight: 72.1 kg

DRUGS (16)
  1. TILIDIN COMP [Concomitant]
     Active Substance: NALOXONE HYDROCHLORIDE\TILIDINE HYDROCHLORIDE
     Dosage: 1 DF, QD
  2. TAVANIC [Suspect]
     Active Substance: LEVOFLOXACIN
     Indication: HEPATIC CYST INFECTION
     Dosage: UNK
  3. OSVAREN [Concomitant]
     Active Substance: CALCIUM ACETATE\MAGNESIUM CARBONATE
     Dosage: 5 UNK, UNK, 1-1-3
  4. NOVAMINSULFON [Concomitant]
     Active Substance: METAMIZOLE
     Dosage: 20 DRP, PRN
  5. L-THYROX [Concomitant]
     Active Substance: LEVOTHYROXINE SODIUM
     Dosage: 175 UG, QD
  6. VITAMIN B12 [Concomitant]
     Active Substance: CYANOCOBALAMIN
     Dosage: 1 UNK, UNK EVERY 13 WEEKS
     Route: 042
  7. VANCOMYCIN [Suspect]
     Active Substance: VANCOMYCIN
     Indication: HEPATIC CYST INFECTION
     Dosage: 500 MG, QW3
     Route: 042
  8. ZINKOROTAT [Concomitant]
     Dosage: 1 DF, BID
  9. DEKRISTOL [Concomitant]
     Active Substance: CHOLECALCIFEROL
     Dosage: 1 UNK, UNK
  10. ASPIRIN. [Concomitant]
     Active Substance: ASPIRIN
     Dosage: 100 MG, UNK, EVERY 2ND DAY
  11. PANTOPRAZOLE [Concomitant]
     Active Substance: PANTOPRAZOLE SODIUM
     Dosage: 20 MG, QD
  12. AMLODIPINE [Concomitant]
     Active Substance: AMLODIPINE BESYLATE
     Dosage: 2.5 MG, QD
  13. OXAZEPAM. [Concomitant]
     Active Substance: OXAZEPAM
  14. EPOETIN ALFA [Suspect]
     Active Substance: ERYTHROPOIETIN
     Indication: NEPHROGENIC ANAEMIA
     Dosage: 8000 IU, QW3
     Route: 042
     Dates: start: 20141017
  15. FERMED//SACCHARATED IRON OXIDE [Concomitant]
     Dosage: 1 DF, UNK
     Route: 065
  16. DREISAVIT N [Concomitant]
     Dosage: 1 DF, QD

REACTIONS (10)
  - Flank pain [Recovered/Resolved]
  - Bundle branch block left [None]
  - General physical health deterioration [Recovered/Resolved]
  - Lung infiltration [None]
  - Hepatic cyst infection [Recovered/Resolved]
  - C-reactive protein increased [Recovered/Resolved]
  - Mucosal atrophy [None]
  - Oesophageal candidiasis [Recovering/Resolving]
  - Abdominal pain upper [Recovering/Resolving]
  - Chronic gastritis [None]

NARRATIVE: CASE EVENT DATE: 20141121
